FAERS Safety Report 24549201 (Version 3)
Quarter: 2024Q4

REPORT INFORMATION
  Report Type: Spontaneous
  Country: US (occurrence: US)
  Receive Date: 20241025
  Receipt Date: 20241122
  Transmission Date: 20250114
  Serious: Yes (Hospitalization)
  Sender: BAYER HEALTHCARE LLC
  Company Number: US-BAYER-2024A152697

PATIENT
  Age: 82 Year
  Sex: Female

DRUGS (2)
  1. MIRALAX [Suspect]
     Active Substance: POLYETHYLENE GLYCOL 3350
     Indication: Gastrointestinal disorder
     Dosage: 2 DF, QD (2 CUPS OF MIRALAX MIXTURE EACH DAY DOSE )
     Route: 048
     Dates: start: 20241019, end: 20241020
  2. MIRALAX [Suspect]
     Active Substance: POLYETHYLENE GLYCOL 3350
     Indication: Constipation

REACTIONS (8)
  - Diarrhoea [Recovered/Resolved]
  - Anal incontinence [None]
  - Abdominal discomfort [None]
  - Asthenia [Recovered/Resolved]
  - Fatigue [Recovered/Resolved]
  - Frequent bowel movements [None]
  - Pollakiuria [None]
  - Product prescribing error [Not Recovered/Not Resolved]

NARRATIVE: CASE EVENT DATE: 20241001
